FAERS Safety Report 17834848 (Version 3)
Quarter: 2020Q4

REPORT INFORMATION
  Report Type: Spontaneous
  Country: DE (occurrence: DE)
  Receive Date: 20200528
  Receipt Date: 20201215
  Transmission Date: 20210113
  Serious: Yes (Hospitalization, Other)
  Sender: FDA-Public Use
  Company Number: NVSC2020DE146902

PATIENT
  Age: 76 Year
  Sex: Male
  Weight: 87 kg

DRUGS (7)
  1. METFORMIN 500 [Suspect]
     Active Substance: METFORMIN HYDROCHLORIDE
     Indication: PRODUCT USED FOR UNKNOWN INDICATION
     Dosage: UNK(500 MG)
     Route: 065
     Dates: start: 2009, end: 2016
  2. SPIRONOLACTONE. [Suspect]
     Active Substance: SPIRONOLACTONE
     Indication: PRODUCT USED FOR UNKNOWN INDICATION
     Dosage: 1 DF, QD  (1-0-0) 25 (UNSPECIFIED UNIT)
     Route: 065
  3. SIMVA [Suspect]
     Active Substance: SIMVASTATIN
     Indication: PRODUCT USED FOR UNKNOWN INDICATION
     Dosage: 1 DF, QD (0-0-1) 40 (UNSPECIFIED UNIT)
     Route: 065
  4. TAMSULOSIN [Suspect]
     Active Substance: TAMSULOSIN
     Indication: PRODUCT USED FOR UNKNOWN INDICATION
     Dosage: UNK, QD (1-0-0)
     Route: 065
  5. BISOPROLOL [Suspect]
     Active Substance: BISOPROLOL
     Indication: PRODUCT USED FOR UNKNOWN INDICATION
     Dosage: UNK, QD (1-0-0)
     Route: 065
  6. ACETYLSALICYLIC ACID [Suspect]
     Active Substance: ASPIRIN
     Indication: PRODUCT USED FOR UNKNOWN INDICATION
     Dosage: 1 DF, QD (1-0-0) 100 (UNSPECIFIED UNIT)
     Route: 065
  7. TOREM [Suspect]
     Active Substance: TORSEMIDE
     Indication: PRODUCT USED FOR UNKNOWN INDICATION
     Dosage: 1 DF, QD (1-0-0) 20 (UNSPECIFIED UNIT)
     Route: 065

REACTIONS (22)
  - Fluid retention [Recovering/Resolving]
  - Pulmonary oedema [Recovering/Resolving]
  - Umbilical hernia [Unknown]
  - Drug ineffective [Unknown]
  - Pleural effusion [Recovering/Resolving]
  - N-terminal prohormone brain natriuretic peptide increased [Recovering/Resolving]
  - Helicobacter test positive [Unknown]
  - Drug interaction [Unknown]
  - Arterial disorder [Recovering/Resolving]
  - Body temperature increased [Recovered/Resolved]
  - Weight decreased [Recovered/Resolved]
  - Weight increased [Recovered/Resolved]
  - Ischaemic cardiomyopathy [Recovering/Resolving]
  - Cardiac failure [Recovering/Resolving]
  - Dyspnoea exertional [Recovering/Resolving]
  - C-reactive protein increased [Recovered/Resolved]
  - Duodenal ulcer [Unknown]
  - Ejection fraction decreased [Recovering/Resolving]
  - Coronary artery disease [Unknown]
  - Gastrointestinal angiectasia [Unknown]
  - Oedema peripheral [Recovering/Resolving]
  - Weight increased [Not Recovered/Not Resolved]

NARRATIVE: CASE EVENT DATE: 2007
